FAERS Safety Report 10151404 (Version 1)
Quarter: 2014Q2

REPORT INFORMATION
  Report Type: Report from Study
  Country: US (occurrence: US)
  Receive Date: 20140503
  Receipt Date: 20140503
  Transmission Date: 20141212
  Serious: No
  Sender: FDA-Public Use
  Company Number: PHEH2014US008577

PATIENT
  Sex: Male

DRUGS (13)
  1. TASIGNA [Suspect]
     Indication: CHRONIC MYELOID LEUKAEMIA
     Dosage: 2 DF, BID
     Route: 048
     Dates: start: 20110210
  2. ASPIRIN [Concomitant]
     Dosage: UNK UKN, UNK
  3. CO Q-10 [Concomitant]
     Dosage: UNK UKN, UNK
  4. COREG [Concomitant]
     Dosage: UNK UKN, UNK
  5. FISH OIL [Concomitant]
     Dosage: UNK UKN, UNK
  6. FLAXSEED OIL [Concomitant]
     Dosage: UNK UKN, UNK
  7. LIVALO [Concomitant]
     Dosage: UNK UKN, UNK
  8. NIASPAN [Concomitant]
     Dosage: UNK UKN, UNK
  9. RAMIPRIL [Concomitant]
     Dosage: UNK UKN, UNK
  10. VITAMIN B [Concomitant]
     Dosage: UNK UKN, UNK
  11. VITAMIIN C [Concomitant]
     Dosage: UNK UKN, UNK
  12. VIT D [Concomitant]
     Dosage: UNK UKN, UNK
  13. WELCHOL [Concomitant]
     Dosage: UNK UKN, UNK

REACTIONS (1)
  - Myalgia [Unknown]
